FAERS Safety Report 6014973-7 (Version None)
Quarter: 2008Q4

REPORT INFORMATION
  Report Type: 
  Country: None (occurrence: None)
  Receive Date: 20081219
  Receipt Date: 20081210
  Transmission Date: 20090506
  Serious: Yes (Hospitalization)
  Sender: FDA-Public Use
  Company Number: JP-AMGEN-US321727

PATIENT
  Sex: Female

DRUGS (15)
  1. ENBREL [Suspect]
     Indication: RHEUMATOID ARTHRITIS
     Route: 058
     Dates: start: 20080226, end: 20081003
  2. ENBREL [Suspect]
     Route: 058
     Dates: start: 20080905, end: 20081003
  3. PREDONINE [Suspect]
     Indication: RHEUMATOID ARTHRITIS
     Route: 048
  4. PREDONINE [Suspect]
     Route: 048
     Dates: start: 20080805
  5. DIAZEPAM [Concomitant]
     Route: 048
  6. COMELIAN [Concomitant]
     Indication: ANGINA PECTORIS
     Route: 048
  7. NEUQUINON [Concomitant]
     Indication: ANGINA PECTORIS
     Route: 048
  8. LOXONIN [Concomitant]
     Indication: PAIN
     Route: 048
  9. AZULFIDINE EN-TABS [Concomitant]
     Indication: RHEUMATOID ARTHRITIS
     Route: 048
  10. TAKEPRON [Concomitant]
     Indication: REFLUX OESOPHAGITIS
     Route: 048
  11. ACTONEL [Concomitant]
     Indication: OSTEOPOROSIS
     Route: 048
  12. COTRIM [Concomitant]
     Route: 048
  13. AVELOX [Concomitant]
     Indication: PNEUMONIA
     Route: 048
     Dates: start: 20080603, end: 20080609
  14. NORVASC [Concomitant]
     Indication: HYPERTENSION
     Route: 048
  15. MARZULENE [Concomitant]
     Route: 048

REACTIONS (4)
  - ATYPICAL MYCOBACTERIAL INFECTION [None]
  - CONDITION AGGRAVATED [None]
  - INTERSTITIAL LUNG DISEASE [None]
  - PNEUMONIA [None]
